FAERS Safety Report 23535836 (Version 1)
Quarter: 2024Q1

REPORT INFORMATION
  Report Type: Spontaneous
  Country: KR (occurrence: KR)
  Receive Date: 20240218
  Receipt Date: 20240218
  Transmission Date: 20240410
  Serious: Yes (Death)
  Sender: FDA-Public Use
  Company Number: KR-STRIDES ARCOLAB LIMITED-2024SP001877

PATIENT
  Age: 72 Year
  Sex: Male

DRUGS (2)
  1. DOXYCYCLINE [Suspect]
     Active Substance: DOXYCYCLINE
     Indication: Borrelia infection
     Dosage: 100 MILLIGRAM, BID
     Route: 065
  2. CIPROFLOXACIN [Suspect]
     Active Substance: CIPROFLOXACIN
     Indication: Borrelia infection
     Dosage: 400 MILLIGRAM, EVERY 12 HRS
     Route: 065

REACTIONS (1)
  - Drug ineffective [Fatal]
